FAERS Safety Report 18274063 (Version 1)
Quarter: 2020Q3

REPORT INFORMATION
  Report Type: Spontaneous
  Country: US (occurrence: US)
  Receive Date: 20200916
  Receipt Date: 20200916
  Transmission Date: 20201103
  Serious: Yes (Hospitalization, Other)
  Sender: FDA-Public Use
  Company Number: US-GLAXOSMITHKLINE-US2020GSK182286

PATIENT
  Age: 74 Year
  Sex: Female

DRUGS (8)
  1. TUMS [Suspect]
     Active Substance: CALCIUM CARBONATE
     Indication: DYSPEPSIA
     Dosage: ABOUT 8?10 PILLS DAILY
  2. ASPIRIN. [Concomitant]
     Active Substance: ASPIRIN
     Indication: PRODUCT USED FOR UNKNOWN INDICATION
     Dosage: UNK
  3. SERTRALINE [Concomitant]
     Active Substance: SERTRALINE HYDROCHLORIDE
     Indication: DEPRESSION
     Dosage: UNK
  4. DEXLANSOPRAZOLE [Concomitant]
     Active Substance: DEXLANSOPRAZOLE
     Indication: GASTROOESOPHAGEAL REFLUX DISEASE
     Dosage: UNK
  5. MIRTAZAPINE. [Concomitant]
     Active Substance: MIRTAZAPINE
     Indication: DEPRESSION
     Dosage: UNK
  6. AMLODIPINE [Concomitant]
     Active Substance: AMLODIPINE BESYLATE
     Indication: HYPERTENSION
     Dosage: UNK
  7. DENOSUMAB [Concomitant]
     Active Substance: DENOSUMAB
     Indication: OSTEOPOROSIS
     Dosage: UNK
  8. CHOLECALCIFEROL [Suspect]
     Active Substance: CHOLECALCIFEROL
     Indication: VITAMIN SUPPLEMENTATION
     Dosage: 2000 U DAILY

REACTIONS (19)
  - Milk-alkali syndrome [Recovering/Resolving]
  - Blood bicarbonate increased [Recovered/Resolved]
  - Hypercalcaemia [Recovering/Resolving]
  - Abdominal pain [Recovering/Resolving]
  - Constipation [Recovering/Resolving]
  - Decreased appetite [Recovering/Resolving]
  - Metabolic alkalosis [Recovering/Resolving]
  - Hypovolaemia [Recovering/Resolving]
  - Overdose [Unknown]
  - Renal failure [Recovering/Resolving]
  - Hypophagia [Recovering/Resolving]
  - Endocarditis enterococcal [Unknown]
  - Oesophagitis [Unknown]
  - Lethargy [Recovering/Resolving]
  - Confusional state [Recovering/Resolving]
  - Urinary tract infection [Unknown]
  - Gastritis [Unknown]
  - Blood creatinine increased [Recovering/Resolving]
  - Iron deficiency anaemia [Unknown]
